FAERS Safety Report 5853406-8 (Version None)
Quarter: 2008Q3

REPORT INFORMATION
  Report Type: 
  Country: None (occurrence: None)
  Receive Date: 20080820
  Receipt Date: 20080808
  Transmission Date: 20090109
  Serious: Yes (Death, Hospitalization)
  Sender: FDA-Public Use
  Company Number: GXKR2008GB07497

PATIENT
  Age: 23 Month
  Sex: Male

DRUGS (3)
  1. DEXAMETHASONE [Suspect]
     Indication: ACUTE LYMPHOCYTIC LEUKAEMIA
  2. VINCRISTINE [Suspect]
     Indication: ACUTE LYMPHOCYTIC LEUKAEMIA
  3. ASPARAGINASE (ASPARAGINASE) [Suspect]
     Indication: ACUTE LYMPHOCYTIC LEUKAEMIA

REACTIONS (19)
  - BIOPSY SKIN ABNORMAL [None]
  - CANDIDA SEPSIS [None]
  - CANDIDIASIS [None]
  - DERMATITIS [None]
  - FAT NECROSIS [None]
  - GENERAL PHYSICAL HEALTH DETERIORATION [None]
  - HEPATIC INFECTION FUNGAL [None]
  - IMMUNOSUPPRESSION [None]
  - LIVER DISORDER [None]
  - NEUTROPENIA [None]
  - PNEUMONITIS [None]
  - PNEUMOTHORAX [None]
  - PYREXIA [None]
  - RASH ERYTHEMATOUS [None]
  - RASH MACULO-PAPULAR [None]
  - RENAL IMPAIRMENT [None]
  - RESPIRATORY DISTRESS [None]
  - SYSTEMIC CANDIDA [None]
  - URINARY TRACT INFECTION FUNGAL [None]
